FAERS Safety Report 17076020 (Version 1)
Quarter: 2019Q4

REPORT INFORMATION
  Report Type: Spontaneous
  Country: US (occurrence: US)
  Receive Date: 20191126
  Receipt Date: 20191126
  Transmission Date: 20200122
  Serious: No
  Sender: FDA-Public Use
  Company Number: US-LEO PHARMA-326597

PATIENT
  Age: 66 Year
  Sex: Male
  Weight: 81.63 kg

DRUGS (2)
  1. PROTOPIC [Suspect]
     Active Substance: TACROLIMUS
     Dosage: DECREASED THE DOSAGE AND BEGAN USING 1/2 INCH
     Dates: start: 20191102, end: 20191115
  2. PROTOPIC [Suspect]
     Active Substance: TACROLIMUS
     Indication: TINEA CRURIS
     Dosage: 1 APPLICATION (1/2 INCH)
     Route: 061
     Dates: start: 20191029, end: 20191101

REACTIONS (3)
  - Genital hypoaesthesia [Not Recovered/Not Resolved]
  - Product use in unapproved indication [Unknown]
  - Disturbance in sexual arousal [Not Recovered/Not Resolved]

NARRATIVE: CASE EVENT DATE: 201911
